FAERS Safety Report 12934315 (Version 1)
Quarter: 2016Q4

REPORT INFORMATION
  Report Type: Report from Study
  Country: US (occurrence: US)
  Receive Date: 20161111
  Receipt Date: 20161111
  Transmission Date: 20170207
  Serious: Yes (Death, Hospitalization)
  Sender: FDA-Public Use
  Company Number: PHEH2016US029411

PATIENT
  Age: 52 Year
  Sex: Female

DRUGS (1)
  1. TAFINLAR [Suspect]
     Active Substance: DABRAFENIB MESYLATE
     Indication: PRODUCT USED FOR UNKNOWN INDICATION
     Dosage: UNK
     Route: 048
     Dates: start: 20160114

REACTIONS (4)
  - Death [Fatal]
  - Oncologic complication [Unknown]
  - Cardiac neoplasm unspecified [Unknown]
  - Disease progression [Unknown]

NARRATIVE: CASE EVENT DATE: 20160301
